FAERS Safety Report 5252575-0 (Version None)
Quarter: 2007Q1

REPORT INFORMATION
  Report Type: 
  Country: None (occurrence: None)
  Receive Date: 20070227
  Receipt Date: 20070210
  Transmission Date: 20070707
  Serious: Yes (Disabling)
  Sender: FDA-Public Use
  Company Number: 236492

PATIENT
  Age: 52 Year
  Sex: Female
  Weight: 70 kg

DRUGS (15)
  1. XOLAIR [Suspect]
     Indication: ASTHMA
     Dosage: 22.5 MG 2/WEEK, SUBCUTANEOUS
     Route: 058
     Dates: start: 20060201
  2. ATARAX [Concomitant]
  3. SOLUPRED (PREDNISOLONE) [Concomitant]
  4. DAFALGAN (ACETAMINOPHEN) [Concomitant]
  5. MOPRAL (OMEPRAZOLE) [Concomitant]
  6. AMLODIPINE BESYLATE [Concomitant]
  7. DAFALGAN CODEINE (ACETAMINOPNEN, CODEINE PHOSPHATE) [Concomitant]
  8. SERETIDE DISKUS (FLUTICASONE PROPIONATE, SALMETEROL XINAFOATE) [Concomitant]
  9. ALDACTONE [Concomitant]
  10. LIORESAL [Concomitant]
  11. TROSPIUM CHLORIDE (TROSPIUM CHLORIDE [Concomitant]
  12. DICETEL (PINAVERIUM BROMIDE) [Concomitant]
  13. BAMBUTEROL (BAMBUTEROL ) [Concomitant]
  14. BRICANYL [Concomitant]
  15. ATROVENT [Concomitant]

REACTIONS (4)
  - PATHOGEN RESISTANCE [None]
  - PHARYNGITIS [None]
  - POLYARTHRITIS [None]
  - TONSILLITIS [None]
